FAERS Safety Report 13155286 (Version 3)
Quarter: 2017Q4

REPORT INFORMATION
  Report Type: Report from Study
  Country: JP (occurrence: JP)
  Receive Date: 20170126
  Receipt Date: 20171023
  Transmission Date: 20180320
  Serious: Yes (Death)
  Sender: FDA-Public Use
  Company Number: JP-OTSUKA-2017_001724

PATIENT
  Age: 49 Year
  Sex: Female
  Weight: 85.9 kg

DRUGS (20)
  1. ARIPIPRAZOLE (DUAL CHAMBER) [Suspect]
     Active Substance: ARIPIPRAZOLE
     Indication: SCHIZOPHRENIA
     Dosage: 400 MG, SINGLE
     Route: 030
     Dates: start: 20160923, end: 20160923
  2. ZETIA [Concomitant]
     Active Substance: EZETIMIBE
     Indication: PRODUCT USED FOR UNKNOWN INDICATION
     Dosage: 10 MG, QD
     Route: 048
  3. ETHYL ICOSAPENTATE [Concomitant]
     Active Substance: ICOSAPENT ETHYL
     Dosage: 1000MG, UNK
     Route: 065
  4. ARIPIPRAZOLE (DUAL CHAMBER) [Suspect]
     Active Substance: ARIPIPRAZOLE
     Dosage: 400 MG, SINGLE
     Route: 030
     Dates: start: 20160627, end: 20160627
  5. ARIPIPRAZOLE (DUAL CHAMBER) [Suspect]
     Active Substance: ARIPIPRAZOLE
     Dosage: 400 MG, SINGLE
     Route: 030
     Dates: start: 20160729, end: 20160729
  6. CERCINE [Suspect]
     Active Substance: DIAZEPAM
     Indication: PRODUCT USED FOR UNKNOWN INDICATION
     Dosage: 5MG/DAY, PRN, ADMINISTERED AS NEEDED WHEN WITH UNREST
     Route: 048
     Dates: start: 20070516
  7. SENNOSIDE [Concomitant]
     Active Substance: SENNOSIDES
     Indication: PRODUCT USED FOR UNKNOWN INDICATION
     Dosage: 24 MG, QD
     Route: 048
  8. ARIPIPRAZOLE (DUAL CHAMBER) [Suspect]
     Active Substance: ARIPIPRAZOLE
     Dosage: 400 MG, SINGLE
     Route: 030
     Dates: start: 20160523, end: 20160523
  9. LULLAN [Suspect]
     Active Substance: PEROSPIRONE HYDROCHLORIDE
     Indication: SCHIZOPHRENIA
     Dosage: 40 MG, QD
     Route: 048
     Dates: start: 20070516
  10. CERCINE [Suspect]
     Active Substance: DIAZEPAM
     Dosage: 50MG, UNK
     Route: 065
  11. LULLAN [Suspect]
     Active Substance: PEROSPIRONE HYDROCHLORIDE
     Dosage: 36MG, UNK
     Route: 065
  12. RISPERDAL [Suspect]
     Active Substance: RISPERIDONE
     Indication: SCHIZOPHRENIA
     Dosage: 0.5ML, PRN, ADMINISTERED AS NEEDED WHEN WITH UNREST
     Route: 048
     Dates: start: 20070516
  13. ABILIFY [Concomitant]
     Active Substance: ARIPIPRAZOLE
     Indication: SCHIZOPHRENIA
     Dosage: 24 MG, QD
     Route: 048
     Dates: start: 20150113, end: 20160509
  14. ABILIFY [Concomitant]
     Active Substance: ARIPIPRAZOLE
     Dosage: 12-24 MG, UNK
     Route: 065
  15. ARIPIPRAZOLE (DUAL CHAMBER) [Suspect]
     Active Substance: ARIPIPRAZOLE
     Dosage: 400 MG, SINGLE
     Route: 030
     Dates: start: 20160826, end: 20160826
  16. BELSOMRA [Suspect]
     Active Substance: SUVOREXANT
     Indication: PRODUCT USED FOR UNKNOWN INDICATION
     Dosage: 20 MG, QD
     Route: 048
     Dates: start: 20160729
  17. ETHYL ICOSAPENTATE [Concomitant]
     Active Substance: ICOSAPENT ETHYL
     Indication: PRODUCT USED FOR UNKNOWN INDICATION
     Dosage: 1200 MG, QD
     Route: 048
  18. ARIPIPRAZOLE (DUAL CHAMBER) [Suspect]
     Active Substance: ARIPIPRAZOLE
     Dosage: 400 MG, SINGLE
     Route: 030
     Dates: start: 20160425, end: 20160425
  19. FLUNITRAZEPAM [Suspect]
     Active Substance: FLUNITRAZEPAM
     Indication: PRODUCT USED FOR UNKNOWN INDICATION
     Dosage: 1MG/DAY,PRN
     Route: 048
     Dates: start: 20070516
  20. DEPAKENE [Suspect]
     Active Substance: VALPROIC ACID
     Indication: PRODUCT USED FOR UNKNOWN INDICATION
     Dosage: 600 MG, QD
     Route: 048
     Dates: start: 20070516

REACTIONS (1)
  - Chest pain [Fatal]

NARRATIVE: CASE EVENT DATE: 20160930
